FAERS Safety Report 9150517 (Version 1)
Quarter: 2013Q1

REPORT INFORMATION
  Report Type: Spontaneous
  Country: FR (occurrence: FR)
  Receive Date: 20130308
  Receipt Date: 20130308
  Transmission Date: 20140127
  Serious: Yes (Hospitalization)
  Sender: FDA-Public Use
  Company Number: FR-BRISTOL-MYERS SQUIBB COMPANY-17443748

PATIENT
  Age: 77 Year
  Sex: Male

DRUGS (10)
  1. METFORMIN HCL [Suspect]
     Indication: TYPE 2 DIABETES MELLITUS
     Dosage: FEB12:850MG,END OF FEB12:350MG
     Route: 048
     Dates: start: 2011, end: 20120522
  2. CARDENSIEL [Suspect]
     Dosage: TAB
     Route: 048
     Dates: end: 20121231
  3. ZYLORIC [Suspect]
     Route: 048
     Dates: end: 20121231
  4. CORDARONE [Concomitant]
  5. SIMVASTATIN [Concomitant]
  6. AMLOR [Concomitant]
  7. COUMADINE [Concomitant]
  8. GLICLAZIDE [Concomitant]
     Dates: start: 20120523
  9. ESIDREX [Concomitant]
  10. VENLAFAXINE HYDROCHLORIDE [Concomitant]

REACTIONS (3)
  - Pruritus [Not Recovered/Not Resolved]
  - Eczema [Not Recovered/Not Resolved]
  - Toxic skin eruption [Not Recovered/Not Resolved]
